FAERS Safety Report 4489094-5 (Version None)
Quarter: 2004Q4

REPORT INFORMATION
  Report Type: 
  Country: None (occurrence: None)
  Receive Date: 20041028
  Receipt Date: 20041022
  Transmission Date: 20050328
  Serious: Yes (Death)
  Sender: FDA-Public Use
  Company Number: 003042

PATIENT
  Age: 51 Year
  Sex: Female

DRUGS (7)
  1. MEDROXYPROGESTERONE ACETATE [Suspect]
     Dosage: ORAL; SEE IMAGE
     Route: 048
     Dates: start: 19940901, end: 19970421
  2. MEDROXYPROGESTERONE ACETATE [Suspect]
     Dosage: ORAL; SEE IMAGE
     Route: 048
     Dates: start: 19970609, end: 20000821
  3. PROVERA [Suspect]
     Dosage: ORAL; SEE IMAGE
     Route: 048
     Dates: start: 19940901, end: 19970421
  4. PROVERA [Suspect]
     Dosage: ORAL; SEE IMAGE
     Route: 048
     Dates: start: 19970609, end: 20000821
  5. PREMARIN [Suspect]
     Dosage: SEE IMAGE
     Dates: start: 19940901, end: 19970421
  6. PREMARIN [Suspect]
     Dosage: SEE IMAGE
     Dates: start: 19970609, end: 20000821
  7. MEDROXYPROGESTERONE ACETATE [Suspect]
     Dosage: ORAL
     Route: 048
     Dates: start: 19970421, end: 19970609

REACTIONS (1)
  - BREAST CANCER FEMALE [None]
